FAERS Safety Report 13672078 (Version 1)
Quarter: 2017Q2

REPORT INFORMATION
  Report Type: Spontaneous
  Country: MT (occurrence: MT)
  Receive Date: 20170620
  Receipt Date: 20170620
  Transmission Date: 20170830
  Serious: Yes (Other)
  Sender: FDA-Public Use
  Company Number: MT-009507513-1706MLT007813

PATIENT
  Age: 30 Month
  Sex: Male

DRUGS (1)
  1. NEOCLARITYN [Suspect]
     Active Substance: DESLORATADINE
     Indication: RHINITIS ALLERGIC
     Dosage: 2.5 ML, QPM (NOCTE)
     Route: 048

REACTIONS (1)
  - Rectal haemorrhage [Recovered/Resolved]
